FAERS Safety Report 18738705 (Version 1)
Quarter: 2021Q1

REPORT INFORMATION
  Report Type: Spontaneous
  Country: US (occurrence: US)
  Receive Date: 20210114
  Receipt Date: 20210114
  Transmission Date: 20210419
  Serious: No
  Sender: FDA-Public Use
  Company Number: US-BAUSCH-BL-2021-001054

PATIENT
  Sex: Female

DRUGS (4)
  1. NEOMYCIN. [Concomitant]
     Active Substance: NEOMYCIN
     Indication: PRODUCT USED FOR UNKNOWN INDICATION
     Route: 048
  2. SPIRONOLACTONE. [Concomitant]
     Active Substance: SPIRONOLACTONE
     Indication: PRODUCT USED FOR UNKNOWN INDICATION
  3. XIFAXAN [Suspect]
     Active Substance: RIFAXIMIN
     Indication: PRODUCT USE IN UNAPPROVED INDICATION
  4. XIFAXAN [Suspect]
     Active Substance: RIFAXIMIN
     Indication: GASTROINTESTINAL BACTERIAL OVERGROWTH
     Dosage: DAY 3 PRIOR TO DATE OF REPORT
     Route: 048
     Dates: start: 20210106

REACTIONS (2)
  - Fluid retention [Unknown]
  - Product use in unapproved indication [Unknown]

NARRATIVE: CASE EVENT DATE: 202101
